FAERS Safety Report 8442806-8 (Version None)
Quarter: 2012Q2

REPORT INFORMATION
  Report Type: 
  Country: None (occurrence: None)
  Receive Date: 20120615
  Receipt Date: 20120613
  Transmission Date: 20120825
  Serious: Yes (Life-Threatening, Hospitalization, Disabling, Other)
  Sender: FDA-Public Use
  Company Number: JP-B.I. PHARMACEUTICALS,INC./RIDGEFIELD-2012-BP-07455NB

PATIENT
  Sex: Female
  Weight: 70.4 kg

DRUGS (9)
  1. CLARITHROMYCIN [Concomitant]
     Indication: SINUSITIS
     Dosage: 400 MG
     Route: 065
     Dates: end: 20120417
  2. DOGMATYL [Concomitant]
     Indication: DYSTHYMIC DISORDER
     Dosage: 0.2 G
     Route: 065
     Dates: end: 20120417
  3. SELBEX [Concomitant]
     Indication: SINUSITIS
     Dosage: 100 MG
     Route: 065
     Dates: end: 20120417
  4. SEPAZON [Concomitant]
     Indication: DYSTHYMIC DISORDER
     Dosage: 0.1 G
     Route: 065
     Dates: end: 20120417
  5. PRADAXA [Suspect]
     Indication: ATRIAL FIBRILLATION
     Dosage: 300 MG
     Route: 048
     Dates: start: 20110423, end: 20120417
  6. CONIEL [Concomitant]
     Indication: HYPERTENSION
     Dosage: 4 MG
     Route: 048
     Dates: start: 20101217, end: 20120417
  7. URSO 250 [Concomitant]
     Indication: HEPATIC FUNCTION ABNORMAL
     Dosage: 400 MG
     Route: 048
     Dates: start: 20020221, end: 20120417
  8. VESICARE [Concomitant]
     Indication: DYSURIA
     Dosage: 5 MG
     Route: 048
     Dates: start: 20101110, end: 20120417
  9. ASVERIN [Concomitant]
     Indication: SINUSITIS
     Dosage: 40 MG
     Route: 065
     Dates: end: 20120417

REACTIONS (5)
  - PYOMYOSITIS [None]
  - URINARY TRACT INFECTION [None]
  - RENAL FAILURE ACUTE [None]
  - RHABDOMYOLYSIS [None]
  - PROTHROMBIN TIME PROLONGED [None]
